FAERS Safety Report 9914015 (Version 1)
Quarter: 2014Q1

REPORT INFORMATION
  Report Type: Spontaneous
  Country: US (occurrence: US)
  Receive Date: 20140220
  Receipt Date: 20140220
  Transmission Date: 20141002
  Serious: Yes (Hospitalization)
  Sender: FDA-Public Use
  Company Number: US-GLAXOSMITHKLINE-A1060656A

PATIENT
  Age: 85 Year
  Sex: Male

DRUGS (4)
  1. ADVAIR HFA [Suspect]
     Indication: CHRONIC OBSTRUCTIVE PULMONARY DISEASE
     Dosage: 2PUFF TWICE PER DAY
     Route: 055
  2. ZOCOR [Concomitant]
  3. LOPRESSOR [Concomitant]
  4. FLOMAX [Concomitant]

REACTIONS (4)
  - Bronchitis [Recovered/Resolved]
  - Blood sodium decreased [Recovered/Resolved]
  - Gastrointestinal disorder [Recovered/Resolved]
  - Rehabilitation therapy [Recovered/Resolved]
